FAERS Safety Report 16441372 (Version 1)
Quarter: 2019Q3

REPORT INFORMATION
  Report Type: Spontaneous
  Country: US (occurrence: US)
  Receive Date: 20190617
  Receipt Date: 20190617
  Transmission Date: 20191004
  Serious: Yes (Hospitalization)
  Sender: FDA-Public Use
  Company Number: None

PATIENT
  Age: 61 Year
  Sex: Female

DRUGS (13)
  1. OXYBUTYNIN. [Concomitant]
     Active Substance: OXYBUTYNIN CHLORIDE
  2. AMLODIPINE [Concomitant]
     Active Substance: AMLODIPINE BESYLATE
  3. CAPECITABINE. [Suspect]
     Active Substance: CAPECITABINE
     Indication: COLON CANCER
     Route: 048
     Dates: start: 20190509
  4. SIMVASTATIN. [Concomitant]
     Active Substance: SIMVASTATIN
  5. GLIPIZIDE. [Concomitant]
     Active Substance: GLIPIZIDE
  6. IBUPROFEN. [Concomitant]
     Active Substance: IBUPROFEN
  7. PROCHLORPER [Concomitant]
  8. LEVOTHYROXIN [Concomitant]
     Active Substance: LEVOTHYROXINE
  9. VICTOZA [Concomitant]
     Active Substance: LIRAGLUTIDE
  10. OMEPRAZOLE. [Concomitant]
     Active Substance: OMEPRAZOLE
  11. LISINOPRIL AND HYDROCHLOROTHIAZIDE [Concomitant]
     Active Substance: HYDROCHLOROTHIAZIDE\LISINOPRIL
  12. METFORMIN [Concomitant]
     Active Substance: METFORMIN HYDROCHLORIDE
  13. NORTIRPTYLIN [Concomitant]

REACTIONS (3)
  - Therapy cessation [None]
  - Neuropathy peripheral [None]
  - Vomiting [None]
